FAERS Safety Report 12458125 (Version 1)
Quarter: 2016Q2

REPORT INFORMATION
  Report Type: Spontaneous
  Country: US (occurrence: US)
  Receive Date: 20160613
  Receipt Date: 20160613
  Transmission Date: 20160815
  Serious: No
  Sender: FDA-Public Use
  Company Number: US-AUROBINDO-AUR-APU-2015-12172

PATIENT
  Sex: Female

DRUGS (1)
  1. OLANZAPINE TABLETS 10MG [Suspect]
     Active Substance: OLANZAPINE
     Indication: PAIN
     Dosage: 10 MG, UNK
     Route: 065

REACTIONS (2)
  - Off label use [Unknown]
  - Therapeutic response unexpected [Unknown]
